FAERS Safety Report 10302827 (Version 1)
Quarter: 2014Q3

REPORT INFORMATION
  Report Type: Spontaneous
  Country: LU (occurrence: LU)
  Receive Date: 20140714
  Receipt Date: 20140714
  Transmission Date: 20150326
  Serious: Yes (Hospitalization)
  Sender: FDA-Public Use
  Company Number: LU-GLAXOSMITHKLINE-B1013416A

PATIENT
  Age: 83 Year
  Sex: Female

DRUGS (5)
  1. LAMICTAL [Suspect]
     Active Substance: LAMOTRIGINE
     Indication: EPILEPSY
     Dosage: 25MG SEE DOSAGE TEXT
     Route: 048
     Dates: start: 201403, end: 20140416
  2. COVERSYL [Concomitant]
     Active Substance: PERINDOPRIL
     Route: 048
  3. ELIQUIS [Suspect]
     Active Substance: APIXABAN
     Indication: ATRIAL FIBRILLATION
     Dosage: 1U PER DAY
     Route: 048
     Dates: start: 20140404, end: 20140417
  4. SPIRONOLACTONE. [Suspect]
     Active Substance: SPIRONOLACTONE
     Indication: CARDIAC FAILURE
     Dosage: 25MG PER DAY
     Route: 048
     Dates: start: 201403, end: 201405
  5. EUTHYROX [Concomitant]
     Active Substance: LEVOTHYROXINE SODIUM

REACTIONS (3)
  - Blood lactate dehydrogenase increased [Recovered/Resolved]
  - Hepatocellular injury [Recovered/Resolved]
  - Cholestasis [Recovered/Resolved]

NARRATIVE: CASE EVENT DATE: 20140416
